FAERS Safety Report 7308643-2 (Version None)
Quarter: 2011Q1

REPORT INFORMATION
  Report Type: 
  Country: None (occurrence: None)
  Receive Date: 20110211
  Receipt Date: 20110127
  Transmission Date: 20110831
  Serious: Yes (Hospitalization)
  Sender: FDA-Public Use
  Company Number: DSJ-2011-01699

PATIENT
  Age: 78 Year
  Sex: Male
  Weight: 61.6 kg

DRUGS (10)
  1. ALDACTONE A (SPIRONOLACTONE) (SPIRONOLACTONE) [Concomitant]
  2. CHOLEBINE (COLESTILAN) COLESTILAN) [Concomitant]
  3. OLMETEC (OLMESARTAN MEDOXOMIL) (TABLET) (OLMESARTAN MEDOXOMIL) [Suspect]
     Indication: ESSENTIAL HYPERTENSION
     Dosage: 20 MG,PER ORAL
     Route: 048
     Dates: start: 20100930
  4. NU-LOTAN (LOSARTAN POTASSIUM) (LOSARTAN POTASSIUM) [Concomitant]
  5. LASIX [Concomitant]
  6. NIFEDIPINE [Concomitant]
  7. ALOSITOL (ALLOPURINOL) (ALLOPURINOL) [Concomitant]
  8. SIGMART (NICORANDIL) (NICORANDIL) [Concomitant]
  9. LORELCO (PROBUCOL) (PROBUCOL) [Concomitant]
  10. GASTER D (FAMOTIDINE) (FAMOTIDINE) [Concomitant]

REACTIONS (1)
  - CARDIAC FAILURE [None]
